FAERS Safety Report 14278203 (Version 2)
Quarter: 2018Q1

REPORT INFORMATION
  Report Type: Report from Study
  Country: FR (occurrence: FR)
  Receive Date: 20171212
  Receipt Date: 20180123
  Transmission Date: 20180508
  Serious: Yes (Other)
  Sender: FDA-Public Use
  Company Number: FR-TEVA-2017-FR-829237

PATIENT
  Age: 2 Year
  Sex: Female

DRUGS (4)
  1. DEXAMETHASONE. [Suspect]
     Active Substance: DEXAMETHASONE
     Indication: ACUTE LYMPHOCYTIC LEUKAEMIA
     Dosage: 3 MILLIGRAM DAILY;
     Route: 048
     Dates: start: 20170801
  2. PEGASPARGASE [Suspect]
     Active Substance: PEGASPARGASE
     Indication: ACUTE LYMPHOCYTIC LEUKAEMIA
     Dosage: 1350 IU (INTERNATIONAL UNIT) DAILY;
     Route: 042
     Dates: start: 20170805, end: 20170805
  3. METHOTREXATE. [Suspect]
     Active Substance: METHOTREXATE
     Indication: ACUTE LYMPHOCYTIC LEUKAEMIA
     Dosage: 8 MILLIGRAM DAILY;
     Route: 037
     Dates: start: 20170725, end: 20170817
  4. VINCRISTINE [Suspect]
     Active Substance: VINCRISTINE
     Indication: ACUTE LYMPHOCYTIC LEUKAEMIA
     Dosage: .8 MILLIGRAM DAILY; 0.8 MG, 1X/DAY:QD
     Route: 042
     Dates: start: 20170801

REACTIONS (1)
  - Hypofibrinogenaemia [Recovered/Resolved]

NARRATIVE: CASE EVENT DATE: 20170817
